FAERS Safety Report 5871714-1 (Version None)
Quarter: 2008Q3

REPORT INFORMATION
  Report Type: 
  Country: None (occurrence: None)
  Receive Date: 20080905
  Receipt Date: 20080901
  Transmission Date: 20090109
  Serious: Yes (Death, Hospitalization)
  Sender: FDA-Public Use
  Company Number: JP-ABBOTT-07P-087-0361172-00

PATIENT
  Sex: Male

DRUGS (24)
  1. NORVIR [Suspect]
     Indication: HIV INFECTION
     Route: 048
     Dates: start: 20050610, end: 20071122
  2. STAVUDINE [Suspect]
     Indication: HIV INFECTION
     Route: 048
     Dates: start: 20050610, end: 20060602
  3. ATAZANAVIR [Suspect]
     Indication: HIV INFECTION
     Route: 048
     Dates: start: 20050610, end: 20071122
  4. EMTRICITABINE W/TENOFOVIR [Suspect]
     Indication: HIV INFECTION
     Route: 048
     Dates: start: 20060608, end: 20071122
  5. LAMIVUDINE [Concomitant]
     Indication: HIV INFECTION
     Route: 048
     Dates: start: 20050610, end: 20060607
  6. CLARITHROMYCIN [Concomitant]
     Indication: DIFFUSE PANBRONCHIOLITIS
     Route: 048
     Dates: start: 20050401, end: 20071122
  7. THEOPHYLLINE [Concomitant]
     Indication: DIFFUSE PANBRONCHIOLITIS
     Route: 048
     Dates: start: 20050401, end: 20071122
  8. AMBROXOL HYDROCHLORIDE [Concomitant]
     Indication: DIFFUSE PANBRONCHIOLITIS
     Route: 048
     Dates: start: 20050401, end: 20071122
  9. L-CARBOCISTEINE [Concomitant]
     Indication: DIFFUSE PANBRONCHIOLITIS
     Route: 048
     Dates: start: 20050401, end: 20071122
  10. CLENBUTEROL HYDROCHLORIDE [Concomitant]
     Indication: DIFFUSE PANBRONCHIOLITIS
     Route: 048
     Dates: start: 20050401, end: 20071122
  11. TULOBUTEROL [Concomitant]
     Indication: DIFFUSE PANBRONCHIOLITIS
     Route: 061
     Dates: start: 20050401, end: 20071122
  12. SALMETEROL XINAFOATE [Concomitant]
     Indication: DIFFUSE PANBRONCHIOLITIS
     Route: 055
     Dates: start: 20050401, end: 20070811
  13. IPRATROPIUM BROMIDE HYDRATE [Concomitant]
     Indication: DIFFUSE PANBRONCHIOLITIS
     Dosage: 1 - 2 TIMES/DAY
     Route: 055
     Dates: start: 20050401
  14. PRANLUKAST HYDRATE [Concomitant]
     Indication: DIFFUSE PANBRONCHIOLITIS
     Route: 048
     Dates: start: 20050401
  15. CIPROFLOXACIN [Concomitant]
     Indication: DIFFUSE PANBRONCHIOLITIS
     Route: 042
     Dates: start: 20050411, end: 20050425
  16. TOBRAMYCIN [Concomitant]
     Indication: DIFFUSE PANBRONCHIOLITIS
     Route: 042
     Dates: start: 20050411, end: 20050425
  17. TOBRAMYCIN [Concomitant]
  18. FOSFOMYCIN [Concomitant]
     Indication: DIFFUSE PANBRONCHIOLITIS
     Route: 042
     Dates: start: 20050415, end: 20050425
  19. FUROSEMIDE [Concomitant]
     Indication: CARDIAC FAILURE
     Route: 042
     Dates: start: 20060331, end: 20060331
  20. OXYGEN [Concomitant]
     Indication: DIFFUSE PANBRONCHIOLITIS
     Dosage: 1-1.5 L/MIN
     Route: 055
     Dates: start: 20050401, end: 20050410
  21. OXYGEN [Concomitant]
     Dosage: 2.5 - 4 L/MIN
     Route: 055
     Dates: start: 20050411, end: 20051001
  22. TENOFOVIR [Concomitant]
     Indication: HIV INFECTION
     Route: 048
     Dates: start: 20060603, end: 20060607
  23. METOCLOPRAMIDE [Concomitant]
     Indication: ABDOMINAL DISTENSION
     Route: 048
     Dates: start: 20060608, end: 20071122
  24. ACETAMINOPHEN [Concomitant]
     Indication: HEADACHE
     Dosage: 3 TIMES DAILY, AS NEEDED
     Route: 048
     Dates: start: 20070613, end: 20071122

REACTIONS (6)
  - ABDOMINAL DISTENSION [None]
  - BLOOD BILIRUBIN INCREASED [None]
  - BLOOD TRIGLYCERIDES INCREASED [None]
  - DIFFUSE PANBRONCHIOLITIS [None]
  - DYSPNOEA [None]
  - MALAISE [None]
